FAERS Safety Report 8969296 (Version 1)
Quarter: 2012Q4

REPORT INFORMATION
  Report Type: 
  Country: JP (occurrence: JP)
  Receive Date: 20121217
  Receipt Date: 20121217
  Transmission Date: 20130627
  Serious: Yes (Hospitalization)
  Sender: FDA-Public Use
  Company Number: PHHY2012JP114555

PATIENT
  Age: 49 Year
  Sex: Female

DRUGS (5)
  1. LANSOPRAZOLE [Suspect]
     Indication: GASTROOESOPHAGEAL REFLUX DISEASE
  2. CIMETIDINE [Concomitant]
  3. OMEPRAZOLE [Concomitant]
  4. GLYCYRRHIZIC ACID [Concomitant]
     Indication: LIVER DISORDER
  5. URSODEOXYCHOLATE SODIUM [Concomitant]
     Indication: LIVER DISORDER

REACTIONS (8)
  - Renal tubular acidosis [Recovering/Resolving]
  - Muscular weakness [Recovering/Resolving]
  - Polydipsia [Recovering/Resolving]
  - Polyuria [Recovering/Resolving]
  - Oedema [Recovering/Resolving]
  - Electrocardiogram abnormal [Recovering/Resolving]
  - Acidosis hyperchloraemic [Recovering/Resolving]
  - Hypokalaemia [Recovering/Resolving]
